FAERS Safety Report 5501262-X (Version None)
Quarter: 2007Q4

REPORT INFORMATION
  Report Type: 
  Country: None (occurrence: None)
  Receive Date: 20071029
  Receipt Date: 20071022
  Transmission Date: 20080405
  Serious: Yes (Disabling)
  Sender: FDA-Public Use
  Company Number: US-MERCK-0710USA04332

PATIENT
  Age: 57 Year
  Sex: Female

DRUGS (14)
  1. ZOCOR [Suspect]
     Indication: BLOOD CHOLESTEROL
     Route: 048
     Dates: start: 20060101, end: 20071011
  2. ZOCOR [Suspect]
     Route: 048
     Dates: start: 20071018
  3. METFORMIN [Concomitant]
     Route: 065
  4. ACTOS [Concomitant]
     Route: 065
  5. PRINIVIL [Concomitant]
     Route: 048
  6. CYCLOBENZAPRINE HYDROCHLORIDE [Concomitant]
     Route: 065
  7. IBUPROFEN [Concomitant]
     Route: 065
  8. SULFAMETHOXAZOLE AND TRIMETHOPRIM [Concomitant]
     Route: 065
  9. CYMBALTA [Concomitant]
     Route: 065
  10. ASPIRIN [Concomitant]
     Route: 065
  11. VITAMINS (UNSPECIFIED) [Concomitant]
     Route: 065
  12. ASIAN GINSENG [Concomitant]
     Route: 065
  13. CALTRATE + D [Concomitant]
     Route: 065
  14. VITAMINS (UNSPECIFIED) [Concomitant]
     Route: 065

REACTIONS (2)
  - MYALGIA [None]
  - PAIN IN EXTREMITY [None]
